FAERS Safety Report 4961020-1 (Version None)
Quarter: 2006Q1

REPORT INFORMATION
  Report Type: 
  Country: None (occurrence: None)
  Receive Date: 20060328
  Receipt Date: 20060313
  Transmission Date: 20060701
  Serious: Yes (Hospitalization)
  Sender: FDA-Public Use
  Company Number: 6009976

PATIENT
  Age: 71 Year
  Sex: Female

DRUGS (6)
  1. BISOPROLOL FUMARATE [Suspect]
     Indication: HYPERTENSION
     Dosage: 5 MG ORAL
     Route: 048
     Dates: start: 20040611, end: 20040730
  2. NORVASC [Suspect]
     Indication: HYPERTENSION
     Dosage: 5 MG ORAL; 2,5 MG ORAL
     Route: 048
     Dates: start: 20011203, end: 20020602
  3. NORVASC [Suspect]
     Indication: HYPERTENSION
     Dosage: 5 MG ORAL; 2,5 MG ORAL
     Route: 048
     Dates: start: 20040212, end: 20040706
  4. PRAVASTATIN [Suspect]
     Indication: HYPERLIPIDAEMIA
     Dosage: 10 MG ORAL
     Route: 048
     Dates: start: 20020516, end: 20040730
  5. LOSARTAN POTASSIUM [Suspect]
     Indication: HYPERTENSION
     Dosage: 25 MG ORAL
     Route: 048
     Dates: start: 20020902, end: 20040730
  6. VITAMEDIN (CAPSULE) (PYRIDOXINE HYDROCHLORIDE, CYANOCOBALAMIN, BENFOTI [Suspect]
     Indication: VITAMIN SUPPLEMENTATION
     Dosage: 3 DOSAGE FORMS ORAL
     Route: 048
     Dates: start: 20030501, end: 20040730

REACTIONS (7)
  - APLASIA PURE RED CELL [None]
  - BLOOD IRON INCREASED [None]
  - DIZZINESS [None]
  - HYPOTENSION [None]
  - PALPITATIONS [None]
  - PROMYELOCYTE COUNT DECREASED [None]
  - SERUM FERRITIN INCREASED [None]
